FAERS Safety Report 4357344-1 (Version None)
Quarter: 2004Q2

REPORT INFORMATION
  Report Type: 
  Country: None (occurrence: None)
  Receive Date: 20040511
  Receipt Date: 20040511
  Transmission Date: 20050107
  Serious: Yes (Other)
  Sender: FDA-Public Use
  Company Number: None

PATIENT
  Age: 24 Year
  Sex: Female
  Weight: 73 kg

DRUGS (3)
  1. GENTAMICIN [Suspect]
     Indication: AORTIC VALVE DISEASE
     Dosage: 50 MG Q 7 HOUR IV
     Route: 042
     Dates: start: 20040407, end: 20040510
  2. GENTAMICIN [Suspect]
     Indication: ENDOCARDITIS
     Dosage: 50 MG Q 7 HOUR IV
     Route: 042
     Dates: start: 20040407, end: 20040510
  3. UNASYN [Concomitant]

REACTIONS (1)
  - TINNITUS [None]
